FAERS Safety Report 11830384 (Version 3)
Quarter: 2015Q4

REPORT INFORMATION
  Report Type: Spontaneous
  Country: US (occurrence: US)
  Receive Date: 20151214
  Receipt Date: 20151214
  Transmission Date: 20160305
  Serious: No
  Sender: FDA-Public Use
  Company Number: US-JNJFOC-20151121814

PATIENT
  Age: 46 Year
  Sex: Male

DRUGS (3)
  1. CETIRIZINE [Concomitant]
     Active Substance: CETIRIZINE HYDROCHLORIDE
     Route: 065
  2. LANSOPRAZOLE. [Concomitant]
     Active Substance: LANSOPRAZOLE
     Route: 065
  3. LEVOFLOXACIN. [Suspect]
     Active Substance: LEVOFLOXACIN
     Indication: EPIDIDYMITIS
     Route: 065

REACTIONS (17)
  - Myalgia [Not Recovered/Not Resolved]
  - Fatigue [Not Recovered/Not Resolved]
  - Gastrointestinal motility disorder [Unknown]
  - Depression [Unknown]
  - Arthralgia [Unknown]
  - Visual impairment [Unknown]
  - Tendon disorder [Not Recovered/Not Resolved]
  - Gastrointestinal disorder [Not Recovered/Not Resolved]
  - Pain [Unknown]
  - Affective disorder [Not Recovered/Not Resolved]
  - Atrophy [Not Recovered/Not Resolved]
  - Tachycardia [Unknown]
  - Muscular weakness [Not Recovered/Not Resolved]
  - Cognitive disorder [Unknown]
  - Neuropathy peripheral [Not Recovered/Not Resolved]
  - Bradycardia [Unknown]
  - Exercise tolerance decreased [Unknown]
